FAERS Safety Report 4963902-3 (Version None)
Quarter: 2006Q2

REPORT INFORMATION
  Report Type: 
  Country: None (occurrence: None)
  Receive Date: 20060405
  Receipt Date: 20051207
  Transmission Date: 20061013
  Serious: Yes (Hospitalization, Disabling)
  Sender: FDA-Public Use
  Company Number: US-MERCK-0512USA01678

PATIENT
  Age: 44 Year
  Sex: Female
  Weight: 94 kg

DRUGS (2)
  1. VIOXX [Suspect]
     Indication: ARTHRITIS
     Route: 048
     Dates: start: 20010101, end: 20040101
  2. TYLENOL (CAPLET) [Concomitant]
     Route: 065

REACTIONS (5)
  - DIFFICULTY IN WALKING [None]
  - DYSSTASIA [None]
  - MENTAL DISORDER [None]
  - PAIN IN EXTREMITY [None]
  - THROMBOSIS [None]
